FAERS Safety Report 19934803 (Version 1)
Quarter: 2021Q4

REPORT INFORMATION
  Report Type: Spontaneous
  Country: LV (occurrence: LV)
  Receive Date: 20211009
  Receipt Date: 20211009
  Transmission Date: 20220303
  Serious: Yes (Hospitalization)
  Sender: FDA-Public Use
  Company Number: LV-009507513-2110LVA000243

PATIENT
  Age: 33 Year
  Sex: Male

DRUGS (1)
  1. ZEPATIER [Suspect]
     Active Substance: ELBASVIR\GRAZOPREVIR
     Dosage: UNK
     Route: 048
     Dates: start: 20210304, end: 20210404

REACTIONS (9)
  - Adverse event [Unknown]
  - Panic attack [Unknown]
  - Vomiting [Unknown]
  - Alanine aminotransferase decreased [Unknown]
  - Panic attack [Unknown]
  - Panic attack [Unknown]
  - Diarrhoea [Unknown]
  - Headache [Unknown]
  - Headache [Unknown]

NARRATIVE: CASE EVENT DATE: 20210306
